FAERS Safety Report 17821803 (Version 2)
Quarter: 2022Q1

REPORT INFORMATION
  Report Type: Spontaneous
  Country: PL (occurrence: PL)
  Receive Date: 20200525
  Receipt Date: 20220208
  Transmission Date: 20220424
  Serious: Yes (Other)
  Sender: FDA-Public Use
  Company Number: PL-BAXTER-2020BAX010298

PATIENT
  Sex: Male

DRUGS (14)
  1. IFOSFAMIDE [Suspect]
     Active Substance: IFOSFAMIDE
     Indication: Alveolar rhabdomyosarcoma
     Dosage: THERAPY ACCORDING TO CWS-2002?CUMULATIVE DOSE: 54000 MG/M2
     Route: 065
  2. CYCLOPHOSPHAMIDE [Suspect]
     Active Substance: CYCLOPHOSPHAMIDE
     Indication: Alveolar rhabdomyosarcoma
     Dosage: THERAPY ACCORDING TO CWS-2002?CUMULATIVE DOSE: 1000 MG/M2
     Route: 065
  3. VINCRISTINE [Suspect]
     Active Substance: VINCRISTINE
     Indication: Alveolar rhabdomyosarcoma
     Dosage: CUMULATIVE DOSE: 16.5 MG/M2
     Route: 065
  4. IRINOTECAN [Suspect]
     Active Substance: IRINOTECAN
     Indication: Alveolar rhabdomyosarcoma
     Dosage: CUMULATIVE DOSE: 65 MG/M2
     Route: 065
  5. DOXORUBICIN [Suspect]
     Active Substance: DOXORUBICIN
     Indication: Alveolar rhabdomyosarcoma
     Dosage: CUMULATIVE DOSE: 160 MG/M2
     Route: 065
  6. ACTINOMYCIN D [Suspect]
     Active Substance: DACTINOMYCIN
     Indication: Alveolar rhabdomyosarcoma
     Dosage: CUMULATIVE DOSE: 3 MG/M2
     Route: 065
  7. ETOPOSIDE [Suspect]
     Active Substance: ETOPOSIDE
     Indication: Alveolar rhabdomyosarcoma
     Dosage: THERAPY ACCORDING TO CWS-2002?CUMULATIVE DOSE: 3600 MG/M2
     Route: 042
  8. ETOPOSIDE [Suspect]
     Active Substance: ETOPOSIDE
     Dosage: CUMULATIVE DOSE: 2000 MG/M2
     Route: 048
  9. CARBOPLATIN [Suspect]
     Active Substance: CARBOPLATIN
     Indication: Alveolar rhabdomyosarcoma
     Dosage: CUMULATIVE DOSE: 6600 MG/M2
     Route: 065
  10. TOPOTECAN [Suspect]
     Active Substance: TOPOTECAN HYDROCHLORIDE
     Indication: Alveolar rhabdomyosarcoma
     Dosage: CUMULATIVE DOSE: 28 MG/M2
     Route: 065
  11. TROFOSFAMIDE [Suspect]
     Active Substance: TROFOSFAMIDE
     Indication: Alveolar rhabdomyosarcoma
     Dosage: CUMULATIVE DOSE: 12000 MG/M2
     Route: 065
  12. IDARUBICIN [Suspect]
     Active Substance: IDARUBICIN
     Indication: Alveolar rhabdomyosarcoma
     Dosage: CUMULATIVE DOSE: 80 MG/M2
     Route: 065
  13. CYTARABINE [Suspect]
     Active Substance: CYTARABINE
     Indication: Alveolar rhabdomyosarcoma
     Route: 065
  14. FLUDARABINE [Suspect]
     Active Substance: FLUDARABINE PHOSPHATE
     Indication: Alveolar rhabdomyosarcoma
     Route: 065

REACTIONS (13)
  - Hyperleukocytosis [Unknown]
  - Hepatosplenomegaly [Unknown]
  - Chromosome analysis abnormal [Unknown]
  - Rhabdomyosarcoma recurrent [Unknown]
  - Rhabdomyosarcoma recurrent [Not Recovered/Not Resolved]
  - Toxicity to various agents [Unknown]
  - Acute myeloid leukaemia [Not Recovered/Not Resolved]
  - Refractory anaemia with an excess of blasts [Unknown]
  - Anaemia [Unknown]
  - Thrombocytopenia [Unknown]
  - Pneumonia fungal [Unknown]
  - Acute myeloid leukaemia [Not Recovered/Not Resolved]
  - Myelodysplastic syndrome [Not Recovered/Not Resolved]

NARRATIVE: CASE EVENT DATE: 20090101
